FAERS Safety Report 14233180 (Version 3)
Quarter: 2018Q1

REPORT INFORMATION
  Report Type: Spontaneous
  Country: US (occurrence: US)
  Receive Date: 20171128
  Receipt Date: 20180117
  Transmission Date: 20180508
  Serious: No
  Sender: FDA-Public Use
  Company Number: US-PFIZER INC-2017510117

PATIENT
  Age: 53 Year
  Sex: Female

DRUGS (1)
  1. ATROPINE SULFATE/DIPHENOXYLATE HYDROCHLORIDE [Suspect]
     Active Substance: ATROPINE SULFATE\DIPHENOXYLATE HYDROCHLORIDE
     Indication: DIARRHOEA
     Dosage: 0.25 MG, 4X/DAY
     Dates: start: 20161110, end: 201704

REACTIONS (9)
  - Hypoaesthesia [Unknown]
  - Dyspepsia [Not Recovered/Not Resolved]
  - Product use issue [Unknown]
  - Nausea [Unknown]
  - Drug effect incomplete [Not Recovered/Not Resolved]
  - Abdominal pain upper [Unknown]
  - Paraesthesia [Unknown]
  - Mood altered [Unknown]
  - Faeces hard [Unknown]

NARRATIVE: CASE EVENT DATE: 20161110
